FAERS Safety Report 7661167-5 (Version None)
Quarter: 2011Q3

REPORT INFORMATION
  Report Type: 
  Country: None (occurrence: None)
  Receive Date: 20110805
  Receipt Date: 20101110
  Transmission Date: 20111222
  Serious: No
  Sender: FDA-Public Use
  Company Number: US-ABBOTT-10P-163-0684830-00

PATIENT
  Sex: Male
  Weight: 73.548 kg

DRUGS (7)
  1. ROSUVASTATIN [Concomitant]
     Indication: BLOOD CHOLESTEROL INCREASED
  2. CARVEDILOL [Concomitant]
     Indication: MYOCARDIAL INFARCTION
  3. NIASPAN [Suspect]
     Indication: BLOOD CHOLESTEROL INCREASED
     Dates: start: 20091101, end: 20101101
  4. NIASPAN [Suspect]
     Dates: start: 20101103, end: 20101110
  5. ASPIRIN [Concomitant]
     Indication: CARDIAC DISORDER
  6. ZOLOFT [Concomitant]
     Indication: DEPRESSION
  7. PLAVIX [Concomitant]
     Indication: MYOCARDIAL INFARCTION

REACTIONS (4)
  - CHEST PAIN [None]
  - FATIGUE [None]
  - UNEVALUABLE EVENT [None]
  - DIZZINESS [None]
